FAERS Safety Report 12705235 (Version 1)
Quarter: 2016Q3

REPORT INFORMATION
  Report Type: Report from Study
  Country: US (occurrence: US)
  Receive Date: 20160831
  Receipt Date: 20160831
  Transmission Date: 20161109
  Serious: Yes (Other)
  Sender: FDA-Public Use
  Company Number: US-GILEAD-2016-0230262

PATIENT
  Age: 77 Year
  Sex: Male

DRUGS (1)
  1. IDELALISIB [Suspect]
     Active Substance: IDELALISIB
     Indication: CHRONIC LYMPHOCYTIC LEUKAEMIA (IN REMISSION)
     Dosage: 150 MG, UNK
     Route: 048
     Dates: start: 201408

REACTIONS (4)
  - Off label use [Not Recovered/Not Resolved]
  - Bone cancer [Unknown]
  - Prostate cancer stage IV [Unknown]
  - Skin cancer [Unknown]
